FAERS Safety Report 7302877-9 (Version None)
Quarter: 2011Q1

REPORT INFORMATION
  Report Type: 
  Country: None (occurrence: None)
  Receive Date: 20110218
  Receipt Date: 20110217
  Transmission Date: 20110831
  Serious: Yes (Life-Threatening, Hospitalization, Other)
  Sender: FDA-Public Use
  Company Number: US-AMGEN-USASP2011006251

PATIENT
  Age: 42 Year
  Sex: Female
  Weight: 131 kg

DRUGS (16)
  1. SENOKOT [Concomitant]
  2. VANCOMYCIN [Concomitant]
     Dosage: UNK
     Dates: start: 20110104, end: 20110113
  3. LISINOPRIL [Concomitant]
     Dosage: UNK
     Dates: start: 20110110, end: 20110208
  4. FAMOTIDINE [Concomitant]
     Dosage: UNK
     Dates: start: 20110101, end: 20110123
  5. MINOLOX [Concomitant]
  6. OXYMETAZOLINE HCL [Concomitant]
     Dosage: UNK
     Dates: start: 20110109, end: 20110203
  7. SENNA                              /00142201/ [Concomitant]
     Dosage: UNK
     Dates: start: 20110102, end: 20110208
  8. ALBUTEROL [Concomitant]
     Dosage: UNK
     Dates: start: 20110115, end: 20110123
  9. CEFEPIME [Concomitant]
     Dosage: UNK
     Dates: start: 20110104, end: 20110113
  10. NPLATE [Suspect]
     Indication: IDIOPATHIC THROMBOCYTOPENIC PURPURA
     Dosage: 3 A?G/KG, QWK
     Route: 058
     Dates: start: 20101229, end: 20110112
  11. IMMUNOGLOBULINS [Concomitant]
  12. OXYCODONE [Concomitant]
  13. MIRALAX [Concomitant]
     Dosage: UNK
     Dates: start: 20110106, end: 20110208
  14. RITUXIMAB [Concomitant]
  15. ACYCLOVIR [Concomitant]
     Dosage: UNK
     Dates: start: 20110104, end: 20110113
  16. SUCRALFATE [Concomitant]
     Dosage: UNK
     Dates: start: 20110122, end: 20110208

REACTIONS (6)
  - SUBARACHNOID HAEMORRHAGE [None]
  - ABDOMINAL HERNIA [None]
  - LUNG NEOPLASM [None]
  - PLEURAL EFFUSION [None]
  - DEEP VEIN THROMBOSIS [None]
  - PULMONARY EMBOLISM [None]
